FAERS Safety Report 19128935 (Version 1)
Quarter: 2021Q2

REPORT INFORMATION
  Report Type: Report from Study
  Country: IL (occurrence: IL)
  Receive Date: 20210413
  Receipt Date: 20210413
  Transmission Date: 20210717
  Serious: Yes (Death)
  Sender: FDA-Public Use
  Company Number: IL-PFIZER INC-2021393274

PATIENT

DRUGS (7)
  1. LEUCOVORIN. [Suspect]
     Active Substance: LEUCOVORIN
     Indication: ADENOCARCINOMA GASTRIC
     Dosage: 30 MG, 4X/DAY (FIRST 36 HOURS)
  2. ETOPOSIDE. [Suspect]
     Active Substance: ETOPOSIDE
     Indication: ADENOCARCINOMA GASTRIC
     Dosage: 75 MG/M2, CYCLIC (DAYS 1?3) OVER 1 H
     Route: 042
  3. LEUCOVORIN. [Suspect]
     Active Substance: LEUCOVORIN
     Dosage: 15 MG, 4X/DAY
  4. FLUOROURACIL. [Suspect]
     Active Substance: FLUOROURACIL
     Indication: ADENOCARCINOMA GASTRIC
     Dosage: 1500 MG/M2, CYCLIC (OVER 1 H, STARTING 1 H AT THE END OF METHOTREXATE INFUSION) DAY 22
     Route: 042
  5. METHOTREXATE. [Suspect]
     Active Substance: METHOTREXATE
     Indication: ADENOCARCINOMA GASTRIC
     Dosage: 1500 MG/M2, CYCLIC (OVER 1 H) DAY 22
     Route: 042
  6. CISPLATIN. [Suspect]
     Active Substance: CISPLATIN
     Indication: ADENOCARCINOMA GASTRIC
     Dosage: 20 MG/M2, CYCLIC (OVER 30 MIN) DAYS 1?3
     Route: 042
  7. DOXORUBICIN HCL [Suspect]
     Active Substance: DOXORUBICIN HYDROCHLORIDE
     Indication: ADENOCARCINOMA GASTRIC
     Dosage: 30 MG/M2, CYCLIC (DAYS 1 AND 36)
     Route: 040

REACTIONS (1)
  - Febrile neutropenia [Fatal]
